FAERS Safety Report 4628593-X (Version None)
Quarter: 2005Q2

REPORT INFORMATION
  Report Type: 
  Country: None (occurrence: None)
  Receive Date: 20050404
  Receipt Date: 20050324
  Transmission Date: 20051028
  Serious: Yes (Hospitalization, Other)
  Sender: FDA-Public Use
  Company Number: 200510125BFR

PATIENT
  Age: 56 Year
  Sex: Male

DRUGS (11)
  1. MOXIFLOXACIN HYDROCHLORIDE [Suspect]
     Indication: SINUSITIS
     Dosage: 400 MG, TOTAL DAILY, ORAL
     Route: 048
     Dates: start: 20050207, end: 20050212
  2. MOXIFLOXACIN HYDROCHLORIDE [Suspect]
     Indication: SUPERINFECTION LUNG
     Dosage: 400 MG, TOTAL DAILY, ORAL
     Route: 048
     Dates: start: 20050207, end: 20050212
  3. SEROPRAM [Concomitant]
  4. MEPRONIZINE [Concomitant]
  5. TEMESTA [Concomitant]
  6. ESPERAL [Concomitant]
  7. SOLUPRED [Concomitant]
  8. OMEPRAZOLE [Concomitant]
  9. SUBRONC [Concomitant]
  10. DOLIPRNE [Concomitant]
  11. RHINOFLUIMUCIL [Concomitant]

REACTIONS (4)
  - ADRENAL DISORDER [None]
  - DRUG WITHDRAWAL SYNDROME [None]
  - FALL [None]
  - GUILLAIN-BARRE SYNDROME [None]
